FAERS Safety Report 8128903-5 (Version None)
Quarter: 2012Q1

REPORT INFORMATION
  Report Type: 
  Country: None (occurrence: None)
  Receive Date: 20120210
  Receipt Date: 20110505
  Transmission Date: 20120608
  Serious: No
  Sender: FDA-Public Use
  Company Number: US-BRISTOL-MYERS SQUIBB COMPANY-15721467

PATIENT
  Age: 50 Year
  Sex: Female
  Weight: 59 kg

DRUGS (4)
  1. CYMBALTA [Concomitant]
  2. ORENCIA [Suspect]
     Indication: RHEUMATOID ARTHRITIS
     Dosage: LAST INF:24APR2011
     Route: 042
     Dates: start: 20110101
  3. TRAMADOL HCL [Concomitant]
  4. PREDNISONE TAB [Concomitant]

REACTIONS (3)
  - HYPERHIDROSIS [None]
  - POOR VENOUS ACCESS [None]
  - PYREXIA [None]
